FAERS Safety Report 7645039-8 (Version None)
Quarter: 2011Q3

REPORT INFORMATION
  Report Type: 
  Country: None (occurrence: None)
  Receive Date: 20110729
  Receipt Date: 20110725
  Transmission Date: 20111222
  Serious: Yes (Death, Congenital Anomaly)
  Sender: FDA-Public Use
  Company Number: FR-VIIV HEALTHCARE LIMITED-B0734757A

PATIENT
  Sex: Female

DRUGS (2)
  1. KALETRA [Suspect]
     Indication: HIV INFECTION
     Dosage: 2UNIT PER DAY
     Route: 064
  2. COMBIVIR [Suspect]
     Indication: HIV INFECTION
     Dosage: 1TAB PER DAY
     Route: 064

REACTIONS (5)
  - TALIPES [None]
  - VENTRICULAR SEPTAL DEFECT [None]
  - FOETAL MALFORMATION [None]
  - MATERNAL EXPOSURE DURING PREGNANCY [None]
  - CARDIAC MALPOSITION [None]
